FAERS Safety Report 7417204-6 (Version None)
Quarter: 2011Q2

REPORT INFORMATION
  Report Type: 
  Country: None (occurrence: None)
  Receive Date: 20110408
  Receipt Date: 20110318
  Transmission Date: 20111010
  Serious: Yes (Other)
  Sender: FDA-Public Use
  Company Number: VISP-NO-1103S-0094

PATIENT
  Age: 68 Year
  Sex: Male

DRUGS (1)
  1. VISIPAQUE [Suspect]
     Indication: PRODUCT USED FOR UNKNOWN INDICATION
     Dosage: 120 ML, SINGLE DOSE, INTRAVENOUS
     Route: 042
     Dates: start: 20110204, end: 20110204

REACTIONS (2)
  - EXTRAVASATION [None]
  - OEDEMA PERIPHERAL [None]
